FAERS Safety Report 21231618 (Version 1)
Quarter: 2022Q3

REPORT INFORMATION
  Report Type: Spontaneous
  Country: US (occurrence: US)
  Receive Date: 20220819
  Receipt Date: 20220819
  Transmission Date: 20221026
  Serious: No
  Sender: FDA-Public Use
  Company Number: US-BRISTOL-MYERS SQUIBB COMPANY-2022-092383

PATIENT
  Age: 80 Year
  Sex: Male

DRUGS (1)
  1. POMALYST [Suspect]
     Active Substance: POMALIDOMIDE
     Indication: Gastric cancer
     Dosage: TAKE ONE CAPSULE BY MOUTH ONCE DAILY FOR 21 DOSES,THEN TAKE 7 DAYS OFF.
     Route: 048
     Dates: start: 20210525

REACTIONS (2)
  - Adverse event [Unknown]
  - Intentional product use issue [Unknown]
